FAERS Safety Report 10565154 (Version 1)
Quarter: 2014Q4

REPORT INFORMATION
  Report Type: Spontaneous
  Country: CA (occurrence: None)
  Receive Date: 20141103
  Receipt Date: 20141103
  Transmission Date: 20150529
  Serious: Yes (Other)
  Sender: FDA-Public Use
  Company Number: FK201404661

PATIENT
  Age: 43 Year
  Sex: Female
  Weight: 92 kg

DRUGS (4)
  1. FLUOROURACIL) [Concomitant]
  2. BENADRYL(DIPHENHYDRAMINE HYDROCHLORIDE) [Concomitant]
  3. DEXAMETHASONE. [Concomitant]
     Active Substance: DEXAMETHASONE
  4. IRINOTECAN [Suspect]
     Active Substance: IRINOTECAN

REACTIONS (3)
  - Eye pruritus [None]
  - Urticaria [None]
  - Skin disorder [None]
